FAERS Safety Report 21608997 (Version 1)
Quarter: 2022Q4

REPORT INFORMATION
  Report Type: Spontaneous
  Country: US (occurrence: None)
  Receive Date: 20221116
  Receipt Date: 20221116
  Transmission Date: 20230113
  Serious: Yes (Hospitalization)
  Sender: FDA-Public Use
  Company Number: None

PATIENT
  Sex: Female

DRUGS (1)
  1. OPSUMIT [Suspect]
     Active Substance: MACITENTAN
     Indication: Pulmonary arterial hypertension
     Dosage: FREQUENCY : DAILY;?
     Route: 048
     Dates: start: 202210

REACTIONS (11)
  - Cough [None]
  - Arthralgia [None]
  - Pain in extremity [None]
  - Dyspnoea [None]
  - Pyrexia [None]
  - Chest pain [None]
  - Heart rate increased [None]
  - Blood lactic acid increased [None]
  - Oxygen saturation decreased [None]
  - Respiratory distress [None]
  - Malaise [None]
